FAERS Safety Report 8354922-X (Version None)
Quarter: 2012Q2

REPORT INFORMATION
  Report Type: 
  Country: None (occurrence: None)
  Receive Date: 20120511
  Receipt Date: 20120504
  Transmission Date: 20120825
  Serious: Yes (Other)
  Sender: FDA-Public Use
  Company Number: DE-ASTRAZENECA-2012SE30077

PATIENT
  Age: 77 Year
  Sex: Female

DRUGS (2)
  1. IRESSA [Suspect]
     Route: 048
     Dates: start: 20110601
  2. IRESSA [Suspect]
     Route: 048
     Dates: start: 20101001, end: 20110301

REACTIONS (1)
  - HEPATITIS [None]
